FAERS Safety Report 8184504-4 (Version None)
Quarter: 2012Q1

REPORT INFORMATION
  Report Type: 
  Country: None (occurrence: None)
  Receive Date: 20120305
  Receipt Date: 20120301
  Transmission Date: 20120608
  Serious: Yes (Hospitalization)
  Sender: FDA-Public Use
  Company Number: KR-BAYER-2012-020681

PATIENT
  Age: 65 Year
  Sex: Male
  Weight: 68 kg

DRUGS (6)
  1. NOVOMIX [INSULIN ASPART] [Concomitant]
     Indication: DIABETES MELLITUS
     Dosage: 10 UNK, UNK
     Route: 058
     Dates: start: 20110714
  2. SORAFENIB (RAF KINASE INHIBITOR) [Suspect]
     Dosage: 400 MG, QD
     Route: 048
     Dates: start: 20110101
  3. DIOVAN [Concomitant]
     Indication: HYPERTENSION
     Dosage: 320 MG, UNK
     Route: 048
     Dates: start: 20090902
  4. LIVACT [Concomitant]
     Indication: PROPHYLAXIS
     Dosage: 1 DF, UNK
     Route: 048
     Dates: start: 20110817
  5. SORAFENIB (RAF KINASE INHIBITOR) [Suspect]
     Indication: HEPATIC NEOPLASM MALIGNANT
     Dosage: 400 MG, BID
     Route: 048
     Dates: start: 20110826, end: 20110901
  6. BARACLUDE [Concomitant]
     Indication: HEPATIC CIRRHOSIS
     Dosage: 0.5 MG, UNK
     Route: 048
     Dates: start: 20110801

REACTIONS (2)
  - SKIN NECROSIS [None]
  - SKIN LESION [None]
